FAERS Safety Report 15044264 (Version 3)
Quarter: 2018Q3

REPORT INFORMATION
  Report Type: Spontaneous
  Country: JP (occurrence: JP)
  Receive Date: 20180621
  Receipt Date: 20180706
  Transmission Date: 20181010
  Serious: Yes (Other)
  Sender: FDA-Public Use
  Company Number: JP-PFIZER INC-2018249147

PATIENT
  Age: 5 Decade
  Sex: Male
  Weight: 74 kg

DRUGS (6)
  1. FLUOROURACIL. [Suspect]
     Active Substance: FLUOROURACIL
     Indication: COLON CANCER STAGE IV
     Dosage: 2400 MG/M2, 2 WEEKS PER CYCLE (TOTAL OF 7 CYCLES)
  2. CETUXIMAB. [Suspect]
     Active Substance: CETUXIMAB
     Indication: COLON CANCER STAGE IV
     Dosage: 400 MG/M2, CYCLIC (FIRST CYCLE)
  3. IRINOTECAN HCL [Suspect]
     Active Substance: IRINOTECAN HYDROCHLORIDE
     Indication: COLON CANCER STAGE IV
     Dosage: 150 MG/M2, 2 WEEKS PER CYCLE (TOTAL OF 7 CYCLES)
  4. OXALIPLATIN. [Suspect]
     Active Substance: OXALIPLATIN
     Indication: COLON CANCER STAGE IV
     Dosage: 85 MG/M2, 2 WEEKS PER CYCLE (TOTAL OF 7 CYCLES)
  5. CALCIUM FOLINATE [Suspect]
     Active Substance: LEUCOVORIN CALCIUM
     Indication: COLON CANCER STAGE IV
     Dosage: 200 MG/M2, 2 WEEKS PER CYCLE (TOTAL OF 7 CYCLES)
  6. CETUXIMAB. [Suspect]
     Active Substance: CETUXIMAB
     Dosage: 250 MG/M2, 6 CYCLIC (SECOND CYCLE ONWARDS)

REACTIONS (3)
  - Neuropathy peripheral [Unknown]
  - Alopecia [Unknown]
  - Dermatitis acneiform [Unknown]
